FAERS Safety Report 18156840 (Version 1)
Quarter: 2020Q3

REPORT INFORMATION
  Report Type: Spontaneous
  Country: US (occurrence: US)
  Receive Date: 20200817
  Receipt Date: 20200817
  Transmission Date: 20201103
  Serious: No
  Sender: FDA-Public Use
  Company Number: None

PATIENT
  Age: 21 Year
  Sex: Male
  Weight: 76.5 kg

DRUGS (5)
  1. INHALER [Concomitant]
     Active Substance: UNSPECIFIED INGREDIENT
  2. TRIAMCINOLONE ACETONIDE CREAM [Concomitant]
     Active Substance: TRIAMCINOLONE ACETONIDE
  3. ADVAIR HFA [Concomitant]
     Active Substance: FLUTICASONE PROPIONATE\SALMETEROL XINAFOATE
  4. TRIPLE?FLEX [Concomitant]
  5. EUCRISA [Suspect]
     Active Substance: CRISABOROLE
     Indication: ECZEMA
     Dosage: ?          OTHER STRENGTH:GRAM;QUANTITY:1 OINTMENT;?
     Route: 061
     Dates: start: 20200425, end: 20200815

REACTIONS (2)
  - Application site swelling [None]
  - Peripheral swelling [None]

NARRATIVE: CASE EVENT DATE: 20200815
